FAERS Safety Report 18202254 (Version 1)
Quarter: 2020Q3

REPORT INFORMATION
  Report Type: Spontaneous
  Country: DE (occurrence: DE)
  Receive Date: 20200827
  Receipt Date: 20200827
  Transmission Date: 20201103
  Serious: Yes (Hospitalization)
  Sender: FDA-Public Use
  Company Number: DE-TEVA-2020-DE-1819688

PATIENT
  Age: 82 Year
  Sex: Female
  Weight: 70 kg

DRUGS (18)
  1. HYDROMORPHON [Concomitant]
     Active Substance: HYDROMORPHONE
     Dosage: 2 MILLIGRAM DAILY; 1?0?0?0
     Route: 048
  2. CANDESARTAN. [Concomitant]
     Active Substance: CANDESARTAN
     Dosage: 16 MILLIGRAM DAILY; 1?0?0?0
     Route: 048
  3. LERCANIDIPIN [Concomitant]
     Active Substance: LERCANIDIPINE
     Dosage: 10 MILLIGRAM DAILY; 1?0?0?0
     Route: 048
  4. AGOMELATIN [Concomitant]
     Active Substance: AGOMELATINE
     Dosage: 25 MILLIGRAM DAILY; 0?0?0?1
     Route: 048
  5. PREGABALIN. [Concomitant]
     Active Substance: PREGABALIN
     Dosage: 150 MILLIGRAM DAILY; 1?0?1?0
     Route: 048
  6. LEVOTHYROXIN?NATRIUM [Concomitant]
     Active Substance: LEVOTHYROXINE SODIUM
     Dosage: 50 MICROGRAM DAILY;  1?0?0?0
     Route: 048
  7. PREDNISOLON [Suspect]
     Active Substance: PREDNISOLONE
     Dosage: DISCONTINUED,
     Route: 048
  8. ALLOPURINOL. [Concomitant]
     Active Substance: ALLOPURINOL
     Dosage: 100 MILLIGRAM DAILY; 1?0?0?0
     Route: 048
  9. COLECALCIFEROL (VITAMIN D) [Concomitant]
     Dosage: 20000 IU,MONDAY
  10. BISOPROLOL [Concomitant]
     Active Substance: BISOPROLOL
     Dosage: .5 DOSAGE FORMS DAILY; 5 MG, 0.5?0?0?0
     Route: 048
  11. TORASEMID [Concomitant]
     Active Substance: TORSEMIDE
     Dosage: 20 MILLIGRAM DAILY; 1?1?0?0,
     Route: 048
  12. PANTOPRAZOL [Concomitant]
     Active Substance: PANTOPRAZOLE SODIUM
     Dosage: 20 MILLIGRAM DAILY; 1?0?0?0,
     Route: 048
  13. FOSTER 100/6MIKROGRAMM [Concomitant]
     Dosage: 4 DOSAGE FORMS DAILY; 6 | 100 MG, 2?0?2?0,
     Route: 055
  14. VENLAFAXIN [Concomitant]
     Active Substance: VENLAFAXINE HYDROCHLORIDE
     Dosage: 75 MG, 2?1?0?0
     Route: 048
  15. LANTUS [Concomitant]
     Active Substance: INSULIN GLARGINE
     Dosage: 14 IU (INTERNATIONAL UNIT) DAILY;  0?0?1?0,
     Route: 058
  16. ACETYLSALICYLSAURE [Concomitant]
     Active Substance: ASPIRIN
     Dosage: 100 MILLIGRAM DAILY;  0?1?0?0
     Route: 048
  17. APIDRA [Concomitant]
     Active Substance: INSULIN GLULISINE
     Dosage: BY VALUE
     Route: 058
  18. FOLSAURE [Concomitant]
     Active Substance: FOLIC ACID
     Dosage: 5 MG, TUESDAY
     Route: 048

REACTIONS (4)
  - Acute respiratory failure [Unknown]
  - General physical health deterioration [Unknown]
  - Hyperglycaemia [Unknown]
  - Dyspnoea [Unknown]
